FAERS Safety Report 7562555-8 (Version None)
Quarter: 2011Q2

REPORT INFORMATION
  Report Type: 
  Country: None (occurrence: None)
  Receive Date: 20110614
  Receipt Date: 20110608
  Transmission Date: 20111010
  Serious: Yes (Other)
  Sender: FDA-Public Use
  Company Number: 2011SP026961

PATIENT
  Age: 40 Year
  Sex: Female

DRUGS (1)
  1. DULERA TABLET [Suspect]
     Indication: ASTHMA
     Dosage: INH
     Route: 055

REACTIONS (3)
  - BRONCHOSPASM [None]
  - LOCAL SWELLING [None]
  - PHARYNGEAL OEDEMA [None]
